FAERS Safety Report 12965671 (Version 4)
Quarter: 2016Q4

REPORT INFORMATION
  Report Type: Spontaneous
  Country: JP (occurrence: JP)
  Receive Date: 20161122
  Receipt Date: 20161209
  Transmission Date: 20170207
  Serious: Yes (Death, Other)
  Sender: FDA-Public Use
  Company Number: JP-PFIZER INC-2016533576

PATIENT
  Weight: 4.5 kg

DRUGS (6)
  1. AMIODARONE HCL [Suspect]
     Active Substance: AMIODARONE HYDROCHLORIDE
     Indication: MATERNAL EXPOSURE DURING PREGNANCY
     Dosage: 300 MG, UNK
     Route: 064
  2. HEPARIN [Concomitant]
     Active Substance: HEPARIN SODIUM
     Indication: PROPHYLAXIS
     Dosage: UNK
     Route: 065
  3. CARPERITIDE [Concomitant]
     Active Substance: CARPERITIDE
     Dosage: UNK
     Route: 064
  4. MILRINONE [Concomitant]
     Active Substance: MILRINONE
     Dosage: UNK
     Route: 064
  5. HEPARIN [Concomitant]
     Active Substance: HEPARIN SODIUM
     Indication: MATERNAL EXPOSURE DURING PREGNANCY
  6. POTASSIUM [Concomitant]
     Active Substance: POTASSIUM
     Dosage: UNK
     Route: 064

REACTIONS (3)
  - Foetal heart rate abnormal [Fatal]
  - Stillbirth [Fatal]
  - Maternal exposure during pregnancy [Fatal]
